FAERS Safety Report 25946546 (Version 1)
Quarter: 2025Q4

REPORT INFORMATION
  Report Type: Spontaneous
  Country: US (occurrence: US)
  Receive Date: 20251022
  Receipt Date: 20251022
  Transmission Date: 20260118
  Serious: No
  Sender: PACIRA
  Company Number: US-ORG100016242-2025000243

PATIENT
  Age: 89 Year
  Sex: Female
  Weight: 56.6 kg

DRUGS (1)
  1. ZILRETTA [Suspect]
     Active Substance: TRIAMCINOLONE ACETONIDE
     Indication: Arthralgia
     Dosage: RIGHT KNEE EVERY 3 MONTHS X 4 TO 6 INJECTIONS, LEFT KNEE
     Route: 050

REACTIONS (6)
  - Aortic valve replacement [Unknown]
  - Medical device implantation [Unknown]
  - Mobility decreased [Recovered/Resolved]
  - Gait disturbance [Unknown]
  - Arthralgia [Unknown]
  - Osteoarthritis [Unknown]
